FAERS Safety Report 4357939-5 (Version None)
Quarter: 2004Q2

REPORT INFORMATION
  Report Type: 
  Country: None (occurrence: None)
  Receive Date: 20040510
  Receipt Date: 20040426
  Transmission Date: 20050107
  Serious: Yes (Hospitalization)
  Sender: FDA-Public Use
  Company Number: 2004028306

PATIENT
  Age: 15 Year
  Sex: Female
  Weight: 49.8957 kg

DRUGS (1)
  1. COOL MINT LISTERINE (EUCALYPTOL, MENTHOL, METHYL SALICYLATE, THYMOL) [Suspect]
     Indication: ACCIDENTAL EXPOSURE
     Dosage: A MOUTHFUL ONCE, ORAL
     Route: 048
     Dates: start: 20040426, end: 20040426

REACTIONS (3)
  - ACCIDENTAL EXPOSURE [None]
  - FEELING ABNORMAL [None]
  - VOMITING [None]
